FAERS Safety Report 7564165-5 (Version None)
Quarter: 2011Q2

REPORT INFORMATION
  Report Type: 
  Country: None (occurrence: None)
  Receive Date: 20110622
  Receipt Date: 20080213
  Transmission Date: 20111010
  Serious: Yes (Other)
  Sender: FDA-Public Use
  Company Number: CA-GENENTECH-320443

PATIENT
  Sex: Female
  Weight: 54.4 kg

DRUGS (1)
  1. XOLAIR [Suspect]
     Indication: ASTHMA
     Dosage: 300 MG, Q4W
     Route: 058
     Dates: start: 20060927

REACTIONS (6)
  - BREAST PAIN [None]
  - CATARACT [None]
  - ASTHMA [None]
  - THROAT IRRITATION [None]
  - BURSITIS [None]
  - DYSPNOEA [None]
